FAERS Safety Report 11368257 (Version 1)
Quarter: 2015Q3

REPORT INFORMATION
  Report Type: Spontaneous
  Country: US (occurrence: None)
  Receive Date: 20150811
  Receipt Date: 20150811
  Transmission Date: 20151125
  Serious: Yes (Hospitalization)
  Sender: FDA-Public Use
  Company Number: None

PATIENT
  Age: 72 Year
  Sex: Female
  Weight: 88.91 kg

DRUGS (1)
  1. BYDUREON [Suspect]
     Active Substance: EXENATIDE
     Indication: BLOOD GLUCOSE INCREASED
     Dosage: 4 PENS
     Route: 030
     Dates: start: 20150724

REACTIONS (3)
  - Sedation [None]
  - Pancreatitis [None]
  - Decreased appetite [None]

NARRATIVE: CASE EVENT DATE: 20150809
